FAERS Safety Report 9552097 (Version 1)
Quarter: 2013Q3

REPORT INFORMATION
  Report Type: Spontaneous
  Country: US (occurrence: None)
  Receive Date: 20130923
  Receipt Date: 20130923
  Transmission Date: 20140515
  Serious: Yes (Hospitalization)
  Sender: FDA-Public Use
  Company Number: None

PATIENT
  Age: 40 Year
  Sex: Male
  Weight: 128 kg

DRUGS (2)
  1. CYTARABINE [Suspect]
     Dates: end: 20130730
  2. IDARUBICIN [Suspect]
     Dates: end: 20130729

REACTIONS (4)
  - Blood creatinine increased [None]
  - Blood bilirubin increased [None]
  - Renal failure [None]
  - Cholestasis [None]
